FAERS Safety Report 8978348 (Version 1)
Quarter: 2012Q4

REPORT INFORMATION
  Report Type: Spontaneous
  Country: US (occurrence: None)
  Receive Date: 20121218
  Receipt Date: 20121218
  Transmission Date: 20130627
  Serious: Yes (Life-Threatening)
  Sender: FDA-Public Use
  Company Number: None

PATIENT
  Sex: Female
  Weight: 78.47 kg

DRUGS (2)
  1. ARTHROTEC [Suspect]
     Indication: BLOOD PRESSURE INCREASED
     Dosage: 1 daily 2 weeks
  2. ARTHROTEC [Suspect]
     Indication: TIA
     Dosage: 1 daily 2 weeks

REACTIONS (1)
  - Transient ischaemic attack [None]
